FAERS Safety Report 6206088-X (Version None)
Quarter: 2009Q2

REPORT INFORMATION
  Report Type: 
  Country: None (occurrence: None)
  Receive Date: 20090528
  Receipt Date: 20090525
  Transmission Date: 20091009
  Serious: Yes (Hospitalization)
  Sender: FDA-Public Use
  Company Number: IT-BRISTOL-MYERS SQUIBB COMPANY-14638027

PATIENT
  Age: 68 Year
  Sex: Male
  Weight: 79 kg

DRUGS (7)
  1. CETUXIMAB [Suspect]
     Indication: HEAD AND NECK CANCER
     Dosage: THERAPY WAS POSTPONED UNTIL 20MAY09
     Route: 042
     Dates: start: 20090424
  2. CISPLATIN [Suspect]
     Indication: HEAD AND NECK CANCER
     Dosage: THERAPY WAS POSTPONED UNTIL 20MAY09
     Route: 042
     Dates: start: 20090428
  3. DOCETAXEL [Suspect]
     Indication: HEAD AND NECK CANCER
     Dosage: THERAPY WAS POSTPONED UNTIL 20MAY09
     Route: 042
     Dates: start: 20090428
  4. FLUOROURACIL [Suspect]
     Indication: HEAD AND NECK CANCER
     Dosage: THERAPY WAS POSTPONED UNTIL 20MAY09
     Route: 042
     Dates: start: 20090428
  5. PROCAPTAN [Concomitant]
     Route: 048
     Dates: start: 19910101
  6. PROZAC [Concomitant]
     Indication: DEPRESSION
     Route: 048
     Dates: start: 20090504
  7. POTASION SOLUTION [Concomitant]
     Dosage: 1 DF = 1 SACHET
     Route: 048
     Dates: start: 20090505

REACTIONS (2)
  - C-REACTIVE PROTEIN INCREASED [None]
  - RASH [None]
